FAERS Safety Report 6383702-X (Version None)
Quarter: 2009Q4

REPORT INFORMATION
  Report Type: 
  Country: None (occurrence: None)
  Receive Date: 20091001
  Receipt Date: 20090522
  Transmission Date: 20100525
  Serious: Yes (Other)
  Sender: FDA-Public Use
  Company Number: BR-PFIZER INC-2009217538

PATIENT
  Age: 40 Year

DRUGS (2)
  1. DEPO-PROVERA [Suspect]
     Dosage: 150 MG, EVERY 3 MONTHS
     Route: 030
     Dates: start: 20090513
  2. GESTINOL [Concomitant]
     Indication: MENSTRUAL DISCOMFORT
     Dosage: UNK
     Dates: start: 20090513

REACTIONS (5)
  - FEELING HOT [None]
  - LEIOMYOMA [None]
  - METRORRHAGIA [None]
  - PELVIC PAIN [None]
  - WRONG TECHNIQUE IN DRUG USAGE PROCESS [None]
